FAERS Safety Report 4594986-2 (Version None)
Quarter: 2005Q1

REPORT INFORMATION
  Report Type: 
  Country: None (occurrence: None)
  Receive Date: 20050224
  Receipt Date: 20040928
  Transmission Date: 20050727
  Serious: Yes (Hospitalization)
  Sender: FDA-Public Use
  Company Number: GXKR2004DE00663

PATIENT
  Age: 58 Year
  Sex: Male

DRUGS (4)
  1. SULFAMETHOXAZOLE AND TRIMETHOPRIM [Suspect]
     Indication: PNEUMOCYSTIS JIROVECI INFECTION
     Dosage: 28.75 MG, QID, INTRAVENOUS
     Route: 042
  2. PIRACETAM (PIRACETAM) [Suspect]
     Indication: MYOCLONUS
     Dosage: INTRAVENOUS
     Route: 042
  3. PIRACETAM(PIRACETAM) [Suspect]
     Indication: MYOCLONUS
     Dosage: ORAL
     Route: 048
  4. PANTOPRAZOLE (PANTOPRAZOLE) [Suspect]

REACTIONS (5)
  - CONFUSIONAL STATE [None]
  - DISORIENTATION [None]
  - DRUG INTERACTION [None]
  - MYOCLONUS [None]
  - THERAPY NON-RESPONDER [None]
